FAERS Safety Report 6012699-7 (Version None)
Quarter: 2008Q4

REPORT INFORMATION
  Report Type: 
  Country: None (occurrence: None)
  Receive Date: 20081218
  Receipt Date: 20081209
  Transmission Date: 20090506
  Serious: Yes (Hospitalization, Other)
  Sender: FDA-Public Use
  Company Number: US-AMGEN-QUU323033

PATIENT
  Sex: Female

DRUGS (1)
  1. ENBREL [Suspect]
     Indication: RHEUMATOID ARTHRITIS
     Route: 058

REACTIONS (7)
  - BRONCHITIS [None]
  - CONSTIPATION [None]
  - FALL [None]
  - FEMUR FRACTURE [None]
  - INFECTION [None]
  - INFLUENZA [None]
  - JOINT ARTHROPLASTY [None]
